FAERS Safety Report 7527116-5 (Version None)
Quarter: 2011Q2

REPORT INFORMATION
  Report Type: 
  Country: None (occurrence: None)
  Receive Date: 20110607
  Receipt Date: 20110524
  Transmission Date: 20111010
  Serious: Yes (Other)
  Sender: FDA-Public Use
  Company Number: IT-MYLANLABS-2011S1011080

PATIENT
  Age: 68 Year
  Sex: Female
  Weight: 65 kg

DRUGS (1)
  1. INDOMETHACIN SODIUM [Suspect]
     Indication: MIGRAINE WITH AURA
     Route: 042

REACTIONS (1)
  - CEREBRAL VASOCONSTRICTION [None]
